FAERS Safety Report 26128024 (Version 1)
Quarter: 2025Q4

REPORT INFORMATION
  Report Type: Spontaneous
  Country: EU (occurrence: EU)
  Receive Date: 20251206
  Receipt Date: 20251206
  Transmission Date: 20260118
  Serious: Yes (Disabling)
  Sender: TEVA
  Company Number: None

PATIENT
  Age: 14 Year
  Sex: Female
  Weight: 42 kg

DRUGS (5)
  1. OMEPRAZOLE [Suspect]
     Active Substance: OMEPRAZOLE
     Indication: Product used for unknown indication
     Dosage: 2 CAPS DAILY, OMEPRAZOLE ACTAVIS
     Route: 065
     Dates: start: 20241226, end: 20241229
  2. ALBUTEROL [Concomitant]
     Active Substance: ALBUTEROL
     Indication: Asthma
     Dosage: 1-2 ONCE OR TWICE A DAY AS NEEDED, 0.1 MG/DOSE INHALER, SUSPENSION
     Route: 065
  3. RABEPRAZOLE [Suspect]
     Active Substance: RABEPRAZOLE
     Indication: Gastrooesophageal reflux disease
     Dosage: 20 MG 2 X 1 FOR 4 WEEKS THEN REDUCED TO 1 PER DAY, RABEPRAZOLE ACTAVIS, ANTI-RESISTANT TABLETS
     Route: 065
     Dates: start: 20241017, end: 20241218
  4. BACLOFEN [Suspect]
     Active Substance: BACLOFEN
     Indication: Product used for unknown indication
     Dosage: 10 MG X 3 - BUT WAS REDUCED TO ONE TABLET PER DAY FOR 3 DAYS UNTIL COMPLETELY DISCONTINUED - TOOK...
     Route: 065
     Dates: start: 20241017
  5. SYMBICORT [Concomitant]
     Active Substance: BUDESONIDE\FORMOTEROL FUMARATE DIHYDRATE
     Indication: Asthma
     Dosage: 1 X 1, 160 MICROGRAM/4.5 MICROGRAM/INHALATION
     Route: 065

REACTIONS (3)
  - Myalgia [Recovered/Resolved]
  - Dysphoria [Recovered/Resolved]
  - Major depression [Recovered/Resolved]

NARRATIVE: CASE EVENT DATE: 20241108
